FAERS Safety Report 11296187 (Version 1)
Quarter: 2015Q3

REPORT INFORMATION
  Report Type: Spontaneous
  Country: US (occurrence: US)
  Receive Date: 20150722
  Receipt Date: 20150722
  Transmission Date: 20151125
  Serious: No
  Sender: FDA-Public Use
  Company Number: US-ELI_LILLY_AND_COMPANY-US201006000771

PATIENT
  Age: 89 Year
  Sex: Female

DRUGS (2)
  1. CIPROFLOXACIN. [Concomitant]
     Active Substance: CIPROFLOXACIN
     Dosage: UNK, UNKNOWN
     Route: 065
  2. EVISTA [Suspect]
     Active Substance: RALOXIFENE HYDROCHLORIDE
     Indication: OSTEOPENIA
     Dosage: 60 MG, UNKNOWN
     Route: 065
     Dates: start: 201004

REACTIONS (3)
  - Limb discomfort [Unknown]
  - Muscle spasms [Unknown]
  - Paraesthesia [Unknown]

NARRATIVE: CASE EVENT DATE: 2010
